FAERS Safety Report 25139066 (Version 1)
Quarter: 2025Q1

REPORT INFORMATION
  Report Type: Spontaneous
  Country: CZ (occurrence: CZ)
  Receive Date: 20250331
  Receipt Date: 20250331
  Transmission Date: 20250409
  Serious: Yes (Other)
  Sender: ABBVIE
  Company Number: CZ-ABBVIE-6197759

PATIENT
  Age: 23 Year
  Sex: Female

DRUGS (1)
  1. RISANKIZUMAB [Suspect]
     Active Substance: RISANKIZUMAB
     Indication: Psoriasis
     Route: 058
     Dates: start: 20241024

REACTIONS (2)
  - Tuberculoma [Unknown]
  - Tuberculoma [Unknown]

NARRATIVE: CASE EVENT DATE: 20250211
